FAERS Safety Report 10301085 (Version 2)
Quarter: 2014Q3

REPORT INFORMATION
  Report Type: Spontaneous
  Country: CH (occurrence: CH)
  Receive Date: 20140714
  Receipt Date: 20140808
  Transmission Date: 20150326
  Serious: Yes (Hospitalization)
  Sender: FDA-Public Use
  Company Number: CH-TEVA-492229ISR

PATIENT
  Age: 44 Year
  Sex: Male

DRUGS (15)
  1. TAVANIC 500 [Suspect]
     Active Substance: LEVOFLOXACIN
     Indication: SEPTIC ARTHRITIS STAPHYLOCOCCAL
     Dosage: 1000 MILLIGRAM DAILY;
     Route: 048
     Dates: start: 20131018, end: 20131120
  2. TIENAM [Suspect]
     Active Substance: CILASTATIN SODIUM\IMIPENEM
     Indication: SEPTIC ARTHRITIS STAPHYLOCOCCAL
     Route: 041
     Dates: start: 20131028, end: 20131111
  3. TIENAM [Suspect]
     Active Substance: CILASTATIN SODIUM\IMIPENEM
     Route: 041
     Dates: start: 20131116, end: 20131118
  4. IMODIUM [Concomitant]
     Active Substance: LOPERAMIDE HYDROCHLORIDE
     Indication: DIARRHOEA
     Route: 065
     Dates: start: 20131117
  5. CUBICIN [Suspect]
     Active Substance: DAPTOMYCIN
     Indication: SEPTIC ARTHRITIS STAPHYLOCOCCAL
     Dosage: 1050 MILLIGRAM DAILY;
     Route: 041
     Dates: start: 20131017, end: 20131119
  6. CORDARONE [Concomitant]
     Active Substance: AMIODARONE HYDROCHLORIDE
     Indication: ATRIAL FIBRILLATION
     Dosage: 17G TOTAL
     Route: 041
     Dates: start: 20131103, end: 20131115
  7. HEPARIN [Concomitant]
     Active Substance: HEPARIN SODIUM
     Route: 065
     Dates: start: 20131113, end: 20140123
  8. ACTRAPID [Concomitant]
     Active Substance: INSULIN HUMAN
     Dosage: CONTINUING
     Route: 065
  9. FLOXAPEN [Suspect]
     Active Substance: FLUCLOXACILLIN
     Indication: SEPTIC ARTHRITIS STAPHYLOCOCCAL
     Route: 065
     Dates: start: 20131017, end: 20131028
  10. BELOC ZOC [Concomitant]
     Route: 041
     Dates: start: 20131116, end: 20131117
  11. OPII TINCTURA NORMATA [Concomitant]
     Indication: DIARRHOEA
     Route: 065
     Dates: start: 201310, end: 20131117
  12. LASIX [Concomitant]
     Active Substance: FUROSEMIDE
     Route: 065
     Dates: start: 201310, end: 20131119
  13. KEFZOL [Suspect]
     Active Substance: CEFAZOLIN SODIUM
     Indication: SEPTIC ARTHRITIS STAPHYLOCOCCAL
     Dosage: 8 GRAM DAILY;
     Route: 041
     Dates: start: 20131111, end: 20131117
  14. RIMACTAN [Suspect]
     Active Substance: RIFAMPIN
     Indication: SEPTIC ARTHRITIS STAPHYLOCOCCAL
     Dosage: 1200 MILLIGRAM DAILY;
     Route: 048
     Dates: start: 20131023, end: 20131120
  15. TIENAM [Suspect]
     Active Substance: CILASTATIN SODIUM\IMIPENEM
     Route: 041
     Dates: start: 20131220, end: 20140123

REACTIONS (10)
  - Condition aggravated [Unknown]
  - Aspartate aminotransferase increased [Recovered/Resolved]
  - Drug reaction with eosinophilia and systemic symptoms [Recovered/Resolved]
  - Erythema [Recovered/Resolved]
  - Tubulointerstitial nephritis [Unknown]
  - Rash macular [Unknown]
  - Blood creatinine increased [Unknown]
  - Eosinophil count increased [Recovered/Resolved]
  - Pyrexia [Recovered/Resolved]
  - Renal failure acute [Recovered/Resolved]

NARRATIVE: CASE EVENT DATE: 201310
